FAERS Safety Report 7243030-7 (Version None)
Quarter: 2011Q1

REPORT INFORMATION
  Report Type: 
  Country: None (occurrence: None)
  Receive Date: 20110125
  Receipt Date: 20101001
  Transmission Date: 20110831
  Serious: No
  Sender: FDA-Public Use
  Company Number: US-AMGEN-KDL442603

PATIENT
  Sex: Female

DRUGS (1)
  1. PROLIA [Suspect]
     Indication: OSTEOPOROSIS POSTMENOPAUSAL
     Dosage: UNK UNK, UNK
     Dates: start: 20100914

REACTIONS (4)
  - MUSCULOSKELETAL STIFFNESS [None]
  - MUSCLE TIGHTNESS [None]
  - MYALGIA [None]
  - SLEEP DISORDER [None]
